FAERS Safety Report 12419083 (Version 1)
Quarter: 2016Q2

REPORT INFORMATION
  Report Type: Spontaneous
  Country: US (occurrence: None)
  Receive Date: 20160527
  Receipt Date: 20160527
  Transmission Date: 20160815
  Serious: Yes (Life-Threatening, Hospitalization, Other)
  Sender: FDA-Public Use
  Company Number: None

PATIENT
  Age: 25 Year
  Sex: Male

DRUGS (1)
  1. VIVITROL [Suspect]
     Active Substance: NALTREXONE
     Indication: DRUG DEPENDENCE
     Dates: start: 20140908, end: 20140908

REACTIONS (6)
  - Irritability [None]
  - Suicide attempt [None]
  - Medication monitoring error [None]
  - Pain [None]
  - Surgery [None]
  - Anger [None]

NARRATIVE: CASE EVENT DATE: 20140908
